FAERS Safety Report 7255241-5 (Version None)
Quarter: 2011Q1

REPORT INFORMATION
  Report Type: 
  Country: None (occurrence: None)
  Receive Date: 20110129
  Receipt Date: 20100325
  Transmission Date: 20110831
  Serious: Yes (Hospitalization)
  Sender: FDA-Public Use
  Company Number: US-ABBOTT-10P-163-0634783-00

PATIENT
  Sex: Female

DRUGS (1)
  1. HUMIRA [Suspect]
     Indication: RHEUMATOID ARTHRITIS
     Route: 058
     Dates: start: 20090930

REACTIONS (6)
  - CARDIAC FAILURE CONGESTIVE [None]
  - INJECTION SITE REACTION [None]
  - OEDEMA PERIPHERAL [None]
  - RASH GENERALISED [None]
  - JOINT SWELLING [None]
  - DYSPNOEA [None]
